FAERS Safety Report 24708147 (Version 1)
Quarter: 2024Q4

REPORT INFORMATION
  Report Type: Spontaneous
  Country: ES (occurrence: ES)
  Receive Date: 20241207
  Receipt Date: 20241207
  Transmission Date: 20250115
  Serious: Yes (Other)
  Sender: JOHNSON AND JOHNSON
  Company Number: ES-BAYER-2024A172098

PATIENT
  Age: 72 Year
  Sex: Female

DRUGS (1)
  1. XARELTO [Suspect]
     Active Substance: RIVAROXABAN
     Indication: Atrial fibrillation
     Dosage: UNK
     Route: 048

REACTIONS (5)
  - Syncope [Unknown]
  - Chronic obstructive pulmonary disease [Unknown]
  - Pulmonary fibrosis [Unknown]
  - Dyspnoea [Unknown]
  - Pyrexia [Unknown]
